FAERS Safety Report 20050373 (Version 3)
Quarter: 2021Q4

REPORT INFORMATION
  Report Type: Spontaneous
  Country: BR (occurrence: BR)
  Receive Date: 20211109
  Receipt Date: 20211121
  Transmission Date: 20220303
  Serious: Yes (Life-Threatening, Other)
  Sender: FDA-Public Use
  Company Number: None

PATIENT
  Sex: Female
  Weight: 49 kg

DRUGS (10)
  1. JANUVIA [Suspect]
     Active Substance: SITAGLIPTIN PHOSPHATE
     Indication: Diabetes mellitus
     Dosage: 100 MILLIGRAMS (1 TABLET) PER DAY
     Dates: start: 2018
  2. VITAMINS [Suspect]
     Active Substance: VITAMINS
     Dosage: UNK
     Dates: end: 2021
  3. CALCIUM CARBONATE [Suspect]
     Active Substance: CALCIUM CARBONATE
     Indication: Prophylaxis
     Dosage: 500 MG, 2 TABLETS /DAY
  4. CALCIUM CARBONATE [Suspect]
     Active Substance: CALCIUM CARBONATE
     Dosage: 500 MG, 1 TABLET /DAY
     Route: 048
     Dates: end: 2021
  5. ASPIRIN [Suspect]
     Active Substance: ASPIRIN
     Indication: Anticoagulant therapy
     Dosage: ONCE A DAY AFTER LUNCH
     Route: 048
     Dates: end: 2021
  6. EPOTIN [ERYTHROPOIETIN HUMAN] [Concomitant]
     Indication: Anticoagulant therapy
     Dosage: 4000 INTERNATIONAL UNIT (IU)
  7. EPOTIN [ERYTHROPOIETIN HUMAN] [Concomitant]
     Dosage: 3000 INTERNATIONAL UNIT (IU)
  8. LEVOTHYROXINE [Concomitant]
     Active Substance: LEVOTHYROXINE
     Indication: Thyroid disorder
  9. OLANZAPINE [Concomitant]
     Active Substance: OLANZAPINE
     Indication: Bipolar disorder
  10. LOSARTAN POTASSIUM [Concomitant]
     Active Substance: LOSARTAN POTASSIUM
     Indication: Hypertension

REACTIONS (5)
  - Choking [Recovered/Resolved]
  - Retching [Recovered/Resolved]
  - Chronic kidney disease [Not Recovered/Not Resolved]
  - Dyspepsia [Unknown]
  - Weight decreased [Unknown]

NARRATIVE: CASE EVENT DATE: 20210228
